FAERS Safety Report 22091256 (Version 2)
Quarter: 2023Q1

REPORT INFORMATION
  Report Type: Other
  Country: CA (occurrence: None)
  Receive Date: 20230314
  Receipt Date: 20230316
  Transmission Date: 20230417
  Serious: Yes (Other)
  Sender: FDA-Public Use
  Company Number: CA-ROCHE-3169134

PATIENT
  Age: 28 Year
  Sex: Female
  Weight: 95 kg

DRUGS (2)
  1. OCREVUS [Suspect]
     Active Substance: OCRELIZUMAB
     Indication: Relapsing-remitting multiple sclerosis
     Dosage: 300 MG AT DAY 0 AND 14, THEN 600 MG EVERY 6 MONTH
     Route: 042
     Dates: start: 20220817
  2. OMEGA 3 [Concomitant]
     Active Substance: CAPSAICIN

REACTIONS (10)
  - Chest discomfort [Recovered/Resolved]
  - Fatigue [Unknown]
  - Headache [Unknown]
  - Asthenia [Unknown]
  - Gait disturbance [Not Recovered/Not Resolved]
  - Contusion [Recovering/Resolving]
  - Multiple sclerosis [Unknown]
  - Mobility decreased [Not Recovered/Not Resolved]
  - COVID-19 [Recovered/Resolved]
  - Insomnia [Unknown]

NARRATIVE: CASE EVENT DATE: 20220818
